FAERS Safety Report 9818983 (Version 1)
Quarter: 2014Q1

REPORT INFORMATION
  Report Type: Spontaneous
  Country: US (occurrence: US)
  Receive Date: 20140115
  Receipt Date: 20140115
  Transmission Date: 20141002
  Serious: No
  Sender: FDA-Public Use
  Company Number: US-ENDO PHARMACEUTICALS INC.-ENDC20130007

PATIENT
  Sex: Male
  Weight: 134.38 kg

DRUGS (1)
  1. ENDOCET 10MG/650MG [Suspect]
     Indication: PAIN
     Dosage: 10MG/650MG
     Route: 048

REACTIONS (2)
  - Abdominal discomfort [Not Recovered/Not Resolved]
  - Malaise [Not Recovered/Not Resolved]
